FAERS Safety Report 17886673 (Version 1)
Quarter: 2020Q2

REPORT INFORMATION
  Report Type: Report from Study
  Country: None (occurrence: NL)
  Receive Date: 20200612
  Receipt Date: 20200612
  Transmission Date: 20200714
  Serious: Yes (Other)
  Sender: FDA-Public Use
  Company Number: NL-ABBVIE-18K-114-2385634-00

PATIENT
  Age: 59 Year
  Sex: Male
  Weight: 78 kg

DRUGS (10)
  1. DUODOPA [Suspect]
     Active Substance: CARBIDOPA\LEVODOPA
     Dosage: CD: 4.5
     Route: 050
  2. DUODOPA [Suspect]
     Active Substance: CARBIDOPA\LEVODOPA
     Dosage: MD 7;CD 4.7;ED 2.0
     Route: 050
  3. DUODOPA [Suspect]
     Active Substance: CARBIDOPA\LEVODOPA
     Dosage: MD 6.0;CD 4.5-}4.7;ED 1.5-}2.0
     Route: 050
  4. DUODOPA [Suspect]
     Active Substance: CARBIDOPA\LEVODOPA
     Dosage: MD 7.0. CD 4.4, ED 2.0?16 HOUR ADMINISTRATION
     Route: 050
  5. MOVICOLON [Concomitant]
     Active Substance: POLYETHYLENE GLYCOL 3350\POTASSIUM CHLORIDE\SODIUM BICARBONATE\SODIUM CHLORIDE
     Indication: ABNORMAL FAECES
     Dosage: IF NECESSARY
  6. DUODOPA [Suspect]
     Active Substance: CARBIDOPA\LEVODOPA
     Indication: PARKINSON^S DISEASE
     Dosage: MD: 6; CD: 4.3 ; ED: 1
     Route: 050
     Dates: start: 20180129
  7. LEVODOPA/CARBIDOPA PCH RETARD [Concomitant]
     Indication: PARKINSON^S DISEASE
     Dosage: 100/25MG, PATIENT USES THIS NOW AND LATER IN THE NIGHT
  8. DUODOPA [Suspect]
     Active Substance: CARBIDOPA\LEVODOPA
     Dosage: MD 7;CD 4.6;ED 2.0
     Route: 050
  9. SYMMETREL [Concomitant]
     Active Substance: AMANTADINE HYDROCHLORIDE
     Indication: PARKINSON^S DISEASE
     Dosage: UNIT DOSE: 1
  10. DUODOPA [Suspect]
     Active Substance: CARBIDOPA\LEVODOPA
     Dosage: MD 4.5 CD 2.5 ED 2.0; 16 HOUR ADMINISTRATION
     Route: 050

REACTIONS (28)
  - Restlessness [Unknown]
  - Stoma site oedema [Recovered/Resolved]
  - General physical health deterioration [Not Recovered/Not Resolved]
  - Stoma site erythema [Recovered/Resolved]
  - Diabetes mellitus [Unknown]
  - Weight fluctuation [Not Recovered/Not Resolved]
  - Muscle rigidity [Not Recovered/Not Resolved]
  - Hallucination [Recovered/Resolved]
  - Freezing phenomenon [Not Recovered/Not Resolved]
  - Hyperkinesia [Not Recovered/Not Resolved]
  - Dyskinesia [Recovering/Resolving]
  - On and off phenomenon [Not Recovered/Not Resolved]
  - Intentional product use issue [Unknown]
  - Gait inability [Not Recovered/Not Resolved]
  - Gait disturbance [Not Recovered/Not Resolved]
  - Tremor [Not Recovered/Not Resolved]
  - Weight decreased [Recovered/Resolved]
  - Fear [Not Recovered/Not Resolved]
  - Bradykinesia [Not Recovered/Not Resolved]
  - Therapeutic product effect incomplete [Not Recovered/Not Resolved]
  - Nocturia [Not Recovered/Not Resolved]
  - Abnormal dreams [Not Recovered/Not Resolved]
  - Fall [Not Recovered/Not Resolved]
  - Stoma site pain [Recovering/Resolving]
  - Deep brain stimulation [Unknown]
  - Fistula [Unknown]
  - Mobility decreased [Unknown]
  - Stoma site discharge [Recovered/Resolved]

NARRATIVE: CASE EVENT DATE: 2018
